FAERS Safety Report 9699857 (Version 18)
Quarter: 2015Q3

REPORT INFORMATION
  Report Type: Report from Study
  Country: CA (occurrence: CA)
  Receive Date: 20131121
  Receipt Date: 20150827
  Transmission Date: 20151125
  Serious: Yes (Hospitalization, Other)
  Sender: FDA-Public Use
  Company Number: CA-ROCHE-1306102

PATIENT
  Age: 15 Year
  Sex: Male
  Weight: 37 kg

DRUGS (12)
  1. PREDNISONE. [Suspect]
     Active Substance: PREDNISONE
     Indication: PRODUCT USED FOR UNKNOWN INDICATION
     Route: 065
  2. MORPHINE [Concomitant]
     Active Substance: MORPHINE
  3. ACTEMRA [Suspect]
     Active Substance: TOCILIZUMAB
     Route: 042
     Dates: start: 20131024
  4. LAPRAZOL [Concomitant]
     Active Substance: LANSOPRAZOLE
  5. HYDROCORTISONE. [Concomitant]
     Active Substance: HYDROCORTISONE
     Route: 042
  6. ACTEMRA [Suspect]
     Active Substance: TOCILIZUMAB
     Indication: JUVENILE IDIOPATHIC ARTHRITIS
     Route: 042
  7. IBUPROFEN. [Concomitant]
     Active Substance: IBUPROFEN
  8. AMLODIPINE [Concomitant]
     Active Substance: AMLODIPINE BESYLATE
  9. TYLENOL [Concomitant]
     Active Substance: ACETAMINOPHEN
  10. BENADRYL [Suspect]
     Active Substance: DIPHENHYDRAMINE HYDROCHLORIDE
     Indication: PREMEDICATION
     Route: 042
     Dates: end: 20150807
  11. GABAPENTIN. [Concomitant]
     Active Substance: GABAPENTIN
  12. CELEXA [Concomitant]
     Active Substance: CITALOPRAM HYDROBROMIDE

REACTIONS (15)
  - Body height below normal [Unknown]
  - Vascular access complication [Unknown]
  - Heart rate increased [Unknown]
  - Weight decreased [Unknown]
  - Tooth disorder [Recovered/Resolved]
  - Hypertension [Unknown]
  - Weight increased [Unknown]
  - Constipation [Recovered/Resolved]
  - Infusion related reaction [Unknown]
  - Mental disorder [Not Recovered/Not Resolved]
  - Gastroenteritis viral [Unknown]
  - Nasopharyngitis [Unknown]
  - Somnolence [Unknown]
  - Dehydration [Unknown]
  - Flushing [Unknown]

NARRATIVE: CASE EVENT DATE: 201311
